FAERS Safety Report 7761769-1 (Version None)
Quarter: 2011Q3

REPORT INFORMATION
  Report Type: 
  Country: None (occurrence: None)
  Receive Date: 20110920
  Receipt Date: 20110913
  Transmission Date: 20111222
  Serious: Yes (Death, Hospitalization, Other)
  Sender: FDA-Public Use
  Company Number: PHHY2011US37219

PATIENT
  Sex: Female
  Weight: 69.388 kg

DRUGS (5)
  1. ZOMETA [Suspect]
     Dosage: 4 MG, QMO
  2. DEXAMETHASONE [Concomitant]
  3. REVLIMID [Suspect]
  4. VELCADE [Suspect]
  5. AREDIA [Concomitant]

REACTIONS (12)
  - MULTIPLE MYELOMA [None]
  - PAIN IN EXTREMITY [None]
  - BLOOD CALCIUM ABNORMAL [None]
  - PYREXIA [None]
  - CARDIAC ARREST [None]
  - UNRESPONSIVE TO STIMULI [None]
  - PULMONARY MASS [None]
  - BONE LESION [None]
  - PANCYTOPENIA [None]
  - HAEMOGLOBIN DECREASED [None]
  - BONE PAIN [None]
  - OROPHARYNGEAL PAIN [None]
